FAERS Safety Report 25665671 (Version 1)
Quarter: 2025Q3

REPORT INFORMATION
  Report Type: Spontaneous
  Country: US (occurrence: US)
  Receive Date: 20250811
  Receipt Date: 20250811
  Transmission Date: 20251020
  Serious: Yes (Other)
  Sender: MERCK SHARP & DOHME LLC
  Company Number: US-009507513-2318103

PATIENT
  Sex: Female

DRUGS (2)
  1. KEYTRUDA [Suspect]
     Active Substance: PEMBROLIZUMAB
     Dates: end: 202507
  2. LENVIMA [Suspect]
     Active Substance: LENVATINIB
     Indication: Malignant neoplasm progression
     Route: 048
     Dates: start: 20250805

REACTIONS (6)
  - Hysterectomy [Unknown]
  - Polyuria [Not Recovered/Not Resolved]
  - Constipation [Not Recovered/Not Resolved]
  - Blood urine present [Not Recovered/Not Resolved]
  - Hypertension [Not Recovered/Not Resolved]
  - Malignant neoplasm progression [Unknown]

NARRATIVE: CASE EVENT DATE: 20250101
